FAERS Safety Report 22060117 (Version 2)
Quarter: 2023Q1

REPORT INFORMATION
  Report Type: Spontaneous
  Country: US (occurrence: US)
  Receive Date: 20230303
  Receipt Date: 20230329
  Transmission Date: 20230418
  Serious: No
  Sender: FDA-Public Use
  Company Number: US-PFIZER INC-PV202300039650

PATIENT

DRUGS (4)
  1. SOMAVERT [Suspect]
     Active Substance: PEGVISOMANT
     Indication: Insulin-like growth factor abnormal
     Dosage: UNK
  2. SOMAVERT [Suspect]
     Active Substance: PEGVISOMANT
     Indication: Blood growth hormone abnormal
  3. SOMAVERT [Suspect]
     Active Substance: PEGVISOMANT
     Indication: Neoplasm
  4. SOMAVERT [Suspect]
     Active Substance: PEGVISOMANT
     Indication: Acromegaly

REACTIONS (3)
  - Drug ineffective [Unknown]
  - Injection site reaction [Unknown]
  - Hepatic enzyme increased [Unknown]
